FAERS Safety Report 16938731 (Version 1)
Quarter: 2019Q4

REPORT INFORMATION
  Report Type: Spontaneous
  Country: US (occurrence: US)
  Receive Date: 20190828
  Receipt Date: 20190828
  Transmission Date: 20200122
  Serious: No
  Sender: FDA-Public Use
  Company Number: None

PATIENT
  Age: 81 Year
  Sex: Male
  Weight: 83.01 kg

DRUGS (4)
  1. CLINDAMYCIN. [Suspect]
     Active Substance: CLINDAMYCIN
     Indication: SKELETAL INJURY
     Route: 048
     Dates: start: 20190810, end: 20190815
  2. VITAMIN B12 [Concomitant]
     Active Substance: CYANOCOBALAMIN
  3. CLINDAMYCIN. [Suspect]
     Active Substance: CLINDAMYCIN
     Indication: INFECTION
     Route: 048
     Dates: start: 20190810, end: 20190815
  4. ACETAPHENAMIN [Concomitant]

REACTIONS (3)
  - Diarrhoea [None]
  - Proctalgia [None]
  - Haemorrhoids [None]

NARRATIVE: CASE EVENT DATE: 20190810
